FAERS Safety Report 9593094 (Version 1)
Quarter: 2013Q3

REPORT INFORMATION
  Report Type: Spontaneous
  Country: US (occurrence: None)
  Receive Date: 20130930
  Receipt Date: 20130930
  Transmission Date: 20140515
  Serious: Yes (Other)
  Sender: FDA-Public Use
  Company Number: 1000046288

PATIENT
  Age: 65 Year
  Sex: Female

DRUGS (10)
  1. LINZESS (LINACLOTIDE) (145 MICROGRAM, CAPSULES) [Suspect]
     Indication: IRRITABLE BOWEL SYNDROME
     Dosage: 145 MCG (145 MCG, 1 IN 1 D), ORAL
     Route: 048
     Dates: start: 20130621
  2. LINZESS (LINACLOTIDE) (145 MICROGRAM, CAPSULES) [Suspect]
     Indication: CONSTIPATION
     Dosage: 145 MCG (145 MCG, 1 IN 1 D), ORAL
     Route: 048
     Dates: start: 20130621
  3. PRILOSEC (OMEPRAZOLE) (OMEPRAZOLE) [Concomitant]
  4. ASACOL (MESALAZINE) (MESALAZINE) [Concomitant]
  5. ACCOLATE (ZAFIRLUKAST) (ZAFIRLUKAST) [Concomitant]
  6. BUMEX (BUMETANIDE) (BUMETANIDE) [Concomitant]
  7. REQUIP (ROPINIROLE HYDROCHLORIDE) (ROPINIROLE HYDROCHLORIDE)? [Concomitant]
  8. ZOCOR (SIMVASTATIN) (SIMVASTATIN) [Concomitant]
  9. TOPAMAX (TOPIRAMATE) (TOPIRAMATE) [Concomitant]
  10. SEROQUEL (QUETIAPINE FUMARATE) (QUETIAPINE FUMARATE) [Concomitant]

REACTIONS (1)
  - Constipation [None]
